FAERS Safety Report 6304451-X (Version None)
Quarter: 2009Q3

REPORT INFORMATION
  Report Type: 
  Country: None (occurrence: None)
  Receive Date: 20090811
  Receipt Date: 20090806
  Transmission Date: 20100115
  Serious: Yes (Hospitalization, Other)
  Sender: FDA-Public Use
  Company Number: JP-ASTRAZENECA-2009AP02878

PATIENT
  Age: 59 Year
  Sex: Male
  Weight: 76 kg

DRUGS (7)
  1. ZD4054 [Suspect]
     Indication: PROSTATE CANCER
     Route: 048
     Dates: start: 20080529
  2. ZOLADEX [Suspect]
     Indication: PROSTATE CANCER
     Route: 058
     Dates: start: 20051129
  3. FLUVOXAMINE MALEATE [Suspect]
     Indication: DEPRESSION
     Route: 048
     Dates: start: 20060613
  4. ODYNE [Suspect]
     Indication: PROSTATE CANCER
     Route: 048
     Dates: start: 20070619
  5. COR-TYZINE PEDIATRIC NASAL DROPS [Suspect]
     Indication: RHINITIS HYPERTROPHIC
     Dosage: OPTIMAL DOSE
     Route: 045
     Dates: start: 20081016
  6. HARNAL D [Concomitant]
     Indication: BENIGN PROSTATIC HYPERPLASIA
     Route: 048
     Dates: start: 20050227
  7. OXYMETAZOLINE HYDROCHLORIDE [Concomitant]
     Indication: RHINITIS HYPERTROPHIC
     Dosage: DOSE UNKNOWN, AS REQUIRED
     Route: 045
     Dates: start: 20081016

REACTIONS (1)
  - DIABETES MELLITUS [None]
